FAERS Safety Report 20060265 (Version 2)
Quarter: 2021Q4

REPORT INFORMATION
  Report Type: Spontaneous
  Country: US (occurrence: US)
  Receive Date: 20211111
  Receipt Date: 20211209
  Transmission Date: 20220303
  Serious: No
  Sender: FDA-Public Use
  Company Number: US-HETERO-HET2021US02076

PATIENT

DRUGS (2)
  1. SILDENAFIL [Suspect]
     Active Substance: SILDENAFIL
     Indication: Erectile dysfunction
     Dosage: 100 MG, ONCE A WEEK OR TWICE A WEEK. ONE HALF TABLET (BOTTLE OF 30 AND100 TABLETS)
     Route: 048
     Dates: start: 20210708
  2. VALSARTAN [Concomitant]
     Active Substance: VALSARTAN
     Indication: Hypertension
     Dosage: 80 MG, ONCE A DAY
     Route: 065

REACTIONS (4)
  - Product substitution issue [Unknown]
  - Medication error [Unknown]
  - Drug ineffective [Unknown]
  - No adverse event [Unknown]
